FAERS Safety Report 7384952-6 (Version None)
Quarter: 2011Q1

REPORT INFORMATION
  Report Type: 
  Country: None (occurrence: None)
  Receive Date: 20110330
  Receipt Date: 20110322
  Transmission Date: 20110831
  Serious: Yes (Other)
  Sender: FDA-Public Use
  Company Number: HR-ASTRAZENECA-2011SE16161

PATIENT
  Age: 39 Year
  Sex: Female

DRUGS (1)
  1. CRESTOR [Suspect]
     Indication: LIPID METABOLISM DISORDER
     Route: 048
     Dates: start: 20110120, end: 20110127

REACTIONS (3)
  - PAIN [None]
  - MUSCLE SPASMS [None]
  - ASTHENIA [None]
